FAERS Safety Report 5443265-X (Version None)
Quarter: 2007Q3

REPORT INFORMATION
  Report Type: 
  Country: None (occurrence: None)
  Receive Date: 20070830
  Receipt Date: 20070817
  Transmission Date: 20080115
  Serious: Yes (Hospitalization)
  Sender: FDA-Public Use
  Company Number: KADN20070076

PATIENT
  Age: 50 Year
  Sex: Male

DRUGS (8)
  1. KADIAN 60 MG CAPSULES [Suspect]
     Indication: CANCER PAIN
     Dosage: 1 CAP DAILY, PER ORAL
     Route: 048
     Dates: start: 20070517, end: 20070101
  2. MYSTAN (CLOBAZAM) 10 MG [Suspect]
     Indication: CONVULSION
     Dosage: 1 TAB BID-DAILY, PER ORAL
     Route: 048
     Dates: start: 20070701, end: 20070720
  3. LENDORMIN (BROTIZOLAM) [Suspect]
     Indication: INSOMNIA
     Dosage: 0.25 MG, DAILY
     Dates: start: 20070426, end: 20070720
  4. MORPHINE HCL ELIXIR [Suspect]
     Indication: PAIN
     Dosage: 20 MG, DAILY
     Dates: start: 20070426
  5. SENNOSIDES [Concomitant]
  6. LOXOPROFEN [Concomitant]
  7. LAFUTIDINE [Concomitant]
  8. CARBOCISTEINE [Concomitant]

REACTIONS (8)
  - AGITATION [None]
  - CONVULSION [None]
  - DELIRIUM [None]
  - DEPRESSED LEVEL OF CONSCIOUSNESS [None]
  - GENERAL PHYSICAL HEALTH DETERIORATION [None]
  - RESPIRATORY DEPRESSION [None]
  - RESTLESSNESS [None]
  - SOMNOLENCE [None]
